FAERS Safety Report 6763529-7 (Version None)
Quarter: 2010Q2

REPORT INFORMATION
  Report Type: 
  Country: None (occurrence: None)
  Receive Date: 20100610
  Receipt Date: 20100527
  Transmission Date: 20101027
  Serious: Yes (Hospitalization, Other)
  Sender: FDA-Public Use
  Company Number: PHHY2010FR34798

PATIENT
  Sex: Female

DRUGS (2)
  1. TEGRETOL [Suspect]
     Indication: EPILEPSY
     Dosage: 400 MG
  2. LAMICTAL [Suspect]
     Indication: EPILEPSY
     Dosage: 200

REACTIONS (3)
  - ABORTION INDUCED [None]
  - DRUG EXPOSURE DURING PREGNANCY [None]
  - PREGNANCY [None]
